FAERS Safety Report 8111221-9 (Version None)
Quarter: 2012Q1

REPORT INFORMATION
  Report Type: 
  Country: None (occurrence: None)
  Receive Date: 20120203
  Receipt Date: 20110622
  Transmission Date: 20120608
  Serious: No
  Sender: FDA-Public Use
  Company Number: US-GLAXOSMITHKLINE-A0933909A

PATIENT
  Sex: Female

DRUGS (3)
  1. OXAZEPAM [Suspect]
     Indication: NERVOUSNESS
     Route: 065
  2. PAROXETINE [Suspect]
     Indication: PRODUCT USED FOR UNKNOWN INDICATION
     Route: 048
  3. LAMICTAL [Suspect]
     Indication: PRODUCT USED FOR UNKNOWN INDICATION
     Route: 048

REACTIONS (3)
  - MALAISE [None]
  - DEPRESSION [None]
  - DRUG INEFFECTIVE [None]
